FAERS Safety Report 22925473 (Version 3)
Quarter: 2023Q4

REPORT INFORMATION
  Report Type: Spontaneous
  Country: LK (occurrence: LK)
  Receive Date: 20230908
  Receipt Date: 20231214
  Transmission Date: 20240110
  Serious: Yes (Hospitalization)
  Sender: FDA-Public Use
  Company Number: LK-GE HEALTHCARE-2023CSU007676

PATIENT
  Age: 39 Year
  Sex: Female
  Weight: 75 kg

DRUGS (7)
  1. CLARISCAN [Suspect]
     Active Substance: GADOTERATE MEGLUMINE
     Indication: Magnetic resonance imaging heart
     Dosage: 14 ML (2 UNITS WERE USED), ONCE
     Route: 042
     Dates: start: 20230901, end: 20230901
  2. CLARISCAN [Suspect]
     Active Substance: GADOTERATE MEGLUMINE
     Indication: Dilated cardiomyopathy
  3. SODIUM CHLORIDE [Concomitant]
     Active Substance: SODIUM CHLORIDE
     Indication: Catheter management
     Dosage: UNK
     Dates: start: 20230901, end: 20230901
  4. ASPIRIN [Concomitant]
     Active Substance: ASPIRIN
     Indication: Dilated cardiomyopathy
     Dosage: 75 MG AT NIGHT
     Route: 048
  5. SPIRONOLACTONE [Concomitant]
     Active Substance: SPIRONOLACTONE
     Indication: Dilated cardiomyopathy
     Dosage: 25 MG, BID
     Route: 048
  6. FUROSEMIDE [Concomitant]
     Active Substance: FUROSEMIDE
     Indication: Dilated cardiomyopathy
     Dosage: 20 MG IN THE MORNING
     Route: 048
  7. CAPTOPRIL [Concomitant]
     Active Substance: CAPTOPRIL
     Indication: Dilated cardiomyopathy
     Dosage: 12.5 MG, BID
     Route: 048

REACTIONS (8)
  - Foaming at mouth [Recovered/Resolved]
  - Face oedema [Recovering/Resolving]
  - Dyspnoea [Recovered/Resolved]
  - Angioedema [Recovering/Resolving]
  - Vomiting [Recovered/Resolved]
  - Nausea [Unknown]
  - Chills [Recovered/Resolved]
  - Feeling cold [Recovered/Resolved]

NARRATIVE: CASE EVENT DATE: 20230901
